FAERS Safety Report 21132392 (Version 6)
Quarter: 2023Q2

REPORT INFORMATION
  Report Type: Report from Study
  Country: FR (occurrence: FR)
  Receive Date: 20220726
  Receipt Date: 20230405
  Transmission Date: 20230721
  Serious: Yes (Other)
  Sender: FDA-Public Use
  Company Number: FR-GILEAD-2022-0590915

PATIENT
  Sex: Female
  Weight: 70 kg

DRUGS (11)
  1. SACITUZUMAB GOVITECAN-HZIY [Suspect]
     Active Substance: SACITUZUMAB GOVITECAN-HZIY
     Indication: Triple negative breast cancer
     Dosage: 10 MG, C1 D1-D8
     Route: 042
     Dates: start: 20220520, end: 20220527
  2. SACITUZUMAB GOVITECAN-HZIY [Suspect]
     Active Substance: SACITUZUMAB GOVITECAN-HZIY
     Dosage: 7.5 MG/KG, C2 D1-D8
     Route: 042
     Dates: start: 20220701, end: 20220708
  3. SACITUZUMAB GOVITECAN-HZIY [Suspect]
     Active Substance: SACITUZUMAB GOVITECAN-HZIY
     Dosage: CYCLE 3 7.5 MG/KG
     Route: 042
     Dates: start: 20220809, end: 20220816
  4. FILGRASTIM [Concomitant]
     Active Substance: FILGRASTIM
     Indication: Prophylaxis
  5. TRAMADOL HYDROCHLORIDE [Concomitant]
     Active Substance: TRAMADOL HYDROCHLORIDE
     Indication: Arthralgia
  6. PREDNISOLONE [Concomitant]
     Active Substance: PREDNISOLONE
  7. VOGALENE [Concomitant]
     Active Substance: METOPIMAZINE
  8. SMECTA [MONTMORILLONITE] [Concomitant]
  9. RACECADOTRIL [Concomitant]
     Active Substance: RACECADOTRIL
  10. CARBOPLATIN [Concomitant]
     Active Substance: CARBOPLATIN
     Indication: Triple negative breast cancer
  11. TAXOL [Concomitant]
     Active Substance: PACLITAXEL
     Indication: Triple negative breast cancer

REACTIONS (9)
  - Hyperthermia [Recovered/Resolved]
  - Haemoglobin decreased [Recovered/Resolved]
  - Neutrophil count decreased [Recovered/Resolved]
  - Disease progression [Unknown]
  - Neutropenia [Unknown]
  - Neutropenia [Unknown]
  - Mucosal inflammation [Recovered/Resolved]
  - Weight decreased [Unknown]
  - Aplasia [Unknown]

NARRATIVE: CASE EVENT DATE: 20220531
